FAERS Safety Report 8309969-6 (Version None)
Quarter: 2012Q2

REPORT INFORMATION
  Report Type: 
  Country: None (occurrence: None)
  Receive Date: 20120425
  Receipt Date: 20120423
  Transmission Date: 20120825
  Serious: Yes (Hospitalization, Other)
  Sender: FDA-Public Use
  Company Number: US-PFIZER INC-2012100402

PATIENT
  Sex: Female
  Weight: 83.9 kg

DRUGS (3)
  1. XANAX [Suspect]
     Indication: DEPRESSION
     Dosage: 1 MG, 3X/DAY
  2. NAPROXEN (ALEVE) [Concomitant]
     Indication: HEADACHE
     Dosage: UNK, AS NEEDED
  3. EFFEXOR XR [Suspect]
     Indication: BIPOLAR DISORDER
     Dosage: 75 MG, AS NEEDED

REACTIONS (1)
  - GRAND MAL CONVULSION [None]
